FAERS Safety Report 8615234-X (Version None)
Quarter: 2012Q3

REPORT INFORMATION
  Report Type: 
  Country: None (occurrence: None)
  Receive Date: 20120823
  Receipt Date: 20120820
  Transmission Date: 20120928
  Serious: No
  Sender: FDA-Public Use
  Company Number: US-PFIZER INC-2012204562

PATIENT
  Age: 64 Year
  Sex: Female
  Weight: 90.703 kg

DRUGS (5)
  1. BENADRYL [Suspect]
     Dosage: UNK
  2. COZAAR [Concomitant]
     Indication: HYPERTENSION
     Dosage: 50 MG, DAILY
  3. NORVASC [Concomitant]
     Indication: HYPERTENSION
     Dosage: 5 MG, DAILY
  4. ATENOLOL [Concomitant]
     Indication: HYPERTENSION
     Dosage: 100 MG, DAILY
  5. ATORVASTATIN CALCIUM [Suspect]
     Indication: BLOOD CHOLESTEROL INCREASED
     Dosage: 20 MG, DAILY
     Dates: start: 20120101, end: 20120101

REACTIONS (3)
  - BLOOD CHOLESTEROL INCREASED [None]
  - PRURITUS [None]
  - SOMNOLENCE [None]
